FAERS Safety Report 5051300-6 (Version None)
Quarter: 2006Q3

REPORT INFORMATION
  Report Type: 
  Country: None (occurrence: None)
  Receive Date: 20060710
  Receipt Date: 20060622
  Transmission Date: 20061208
  Serious: Yes (Other)
  Sender: FDA-Public Use
  Company Number: B0429254A

PATIENT

DRUGS (1)
  1. RELAFEN [Suspect]
     Indication: OSTEOARTHRITIS
     Dosage: 500 MG / TWICE PER DAY

REACTIONS (1)
  - MYOCARDIAL INFARCTION [None]
